FAERS Safety Report 11371250 (Version 4)
Quarter: 2016Q1

REPORT INFORMATION
  Report Type: Spontaneous
  Country: US (occurrence: US)
  Receive Date: 20150812
  Receipt Date: 20160108
  Transmission Date: 20160525
  Serious: No
  Sender: FDA-Public Use
  Company Number: US-PFIZER INC-2015265378

PATIENT
  Age: 59 Year
  Sex: Female
  Weight: 77 kg

DRUGS (15)
  1. CLONAZEPAM. [Concomitant]
     Active Substance: CLONAZEPAM
     Indication: ANXIETY
     Dosage: 0.5 MG
  2. EFFEXOR XR EXTENDED-RELEASE [Concomitant]
     Active Substance: VENLAFAXINE HYDROCHLORIDE
     Dosage: UNK
  3. NABUMETONE. [Concomitant]
     Active Substance: NABUMETONE
     Dosage: 500 MG EVERY 12 HOURS AS NEEDED
  4. METHOTREXATE [Concomitant]
     Active Substance: METHOTREXATE
     Dosage: 8 MG
  5. SERTRALINE [Concomitant]
     Active Substance: SERTRALINE HYDROCHLORIDE
     Indication: DEPRESSION
     Dosage: 200 MG, 1X/DAY
  6. GABAPENTIN. [Concomitant]
     Active Substance: GABAPENTIN
     Dosage: 300 MG, 3X/DAY
  7. TRAZODONE [Concomitant]
     Active Substance: TRAZODONE HYDROCHLORIDE
     Indication: SLEEP DISORDER
     Dosage: UNK, 1X/DAY
  8. ACETAMINOPHEN W/HYDROCODONE [Concomitant]
     Active Substance: ACETAMINOPHEN\HYDROCODONE
     Dosage: HYDROCODONE 10 MG, PARACETAMOL 325 MG, 3X/DAY
  9. XELJANZ [Suspect]
     Active Substance: TOFACITINIB CITRATE
     Indication: ARTHRALGIA
  10. FOLIC ACID. [Concomitant]
     Active Substance: FOLIC ACID
     Dosage: TWO 800MCG
  11. XELJANZ [Suspect]
     Active Substance: TOFACITINIB CITRATE
     Indication: RHEUMATOID ARTHRITIS
     Dosage: 5 MG, 2X/DAY
  12. TIZANIDINE. [Concomitant]
     Active Substance: TIZANIDINE
     Indication: MUSCLE RELAXANT THERAPY
     Dosage: ONE TO TWO 4MG TABLET
  13. HYDROXYCHLOROQUINE [Concomitant]
     Active Substance: HYDROXYCHLOROQUINE
     Dosage: 200 MG, 2X/DAY
  14. PREDNISONE. [Concomitant]
     Active Substance: PREDNISONE
     Dosage: UNK
  15. TOPAMAC [Concomitant]
     Active Substance: TOPIRAMATE
     Dosage: UNK

REACTIONS (24)
  - Abdominal pain upper [Unknown]
  - Asthenia [Unknown]
  - Constipation [Unknown]
  - Eructation [Unknown]
  - Hiatus hernia [Unknown]
  - Pain [Not Recovered/Not Resolved]
  - Arthralgia [Unknown]
  - Weight increased [Unknown]
  - Decreased appetite [Unknown]
  - Dyspepsia [Unknown]
  - Musculoskeletal pain [Unknown]
  - Gout [Unknown]
  - Fall [Unknown]
  - Back pain [Unknown]
  - Oesophageal disorder [Unknown]
  - Urinary tract infection [Unknown]
  - Myalgia [Unknown]
  - Flatulence [Unknown]
  - Cough [Unknown]
  - Diarrhoea [Unknown]
  - Abdominal discomfort [Not Recovered/Not Resolved]
  - Arthropathy [Unknown]
  - Pain in extremity [Unknown]
  - Throat irritation [Unknown]

NARRATIVE: CASE EVENT DATE: 20150806
